FAERS Safety Report 14326112 (Version 1)
Quarter: 2017Q4

REPORT INFORMATION
  Report Type: Spontaneous
  Country: US (occurrence: US)
  Receive Date: 20171226
  Receipt Date: 20171226
  Transmission Date: 20180321
  Serious: No
  Sender: FDA-Public Use
  Company Number: US-BIOGEN-2017BI00499414

PATIENT
  Age: 21 Year
  Sex: Male

DRUGS (1)
  1. SPINRAZA [Suspect]
     Active Substance: NUSINERSEN
     Indication: SPINAL MUSCULAR ATROPHY
     Route: 065
     Dates: start: 20171004

REACTIONS (4)
  - Post lumbar puncture syndrome [Unknown]
  - Peripheral swelling [Unknown]
  - Foot fracture [Unknown]
  - Headache [Unknown]

NARRATIVE: CASE EVENT DATE: 20171004
